FAERS Safety Report 17497268 (Version 2)
Quarter: 2020Q1

REPORT INFORMATION
  Report Type: Report from Study
  Country: AU (occurrence: AU)
  Receive Date: 20200304
  Receipt Date: 20200311
  Transmission Date: 20200409
  Serious: Yes (Other)
  Sender: FDA-Public Use
  Company Number: AU-PFIZER INC-2020092555

PATIENT

DRUGS (2)
  1. THIAMINE. [Concomitant]
     Active Substance: THIAMINE
     Indication: SEPTIC SHOCK
     Dosage: 200 MG, 2X/DAY, (200MG EVERY 12 HOURS, GROUPWASALLOWED AT THE DISCRETION OF ATTENDING ICU CLINICIAN)
     Route: 042
  2. HYDROCORTISONE. [Suspect]
     Active Substance: HYDROCORTISONE
     Indication: SEPTIC SHOCK
     Dosage: 50 MG, 4X/DAY, (IV HYDROCORTISONE (50 MG EVERY 6 HOURS))
     Route: 042

REACTIONS (1)
  - Gastrointestinal haemorrhage [Unknown]
